FAERS Safety Report 4358368-0 (Version None)
Quarter: 2004Q2

REPORT INFORMATION
  Report Type: 
  Country: None (occurrence: None)
  Receive Date: 20040511
  Receipt Date: 20040430
  Transmission Date: 20050107
  Serious: Yes (Hospitalization)
  Sender: FDA-Public Use
  Company Number: K200400673

PATIENT
  Age: 64 Year
  Sex: Male
  Weight: 114.7 kg

DRUGS (5)
  1. SEPTRA [Suspect]
     Dosage: 1 TAB, BID, ORAL
     Route: 048
     Dates: start: 20040311, end: 20040323
  2. ZOLEDRONATE (ZOLEDRONIC ACID) SOLUTION, 4MG [Suspect]
     Indication: MULTIPLE MYELOMA
     Dosage: 4 MG, QMON, INTRAVENOUS
     Route: 042
     Dates: start: 20040311, end: 20040311
  3. THALIDOMIDE (THALIDOMIDE) [Concomitant]
  4. DEXAMETHASONE [Concomitant]
  5. COUMADIN [Concomitant]

REACTIONS (2)
  - CHEST PAIN [None]
  - RASH [None]
